FAERS Safety Report 8520379-9 (Version None)
Quarter: 2012Q3

REPORT INFORMATION
  Report Type: 
  Country: None (occurrence: None)
  Receive Date: 20120712
  Receipt Date: 20120712
  Transmission Date: 20120928
  Serious: Yes (Other)
  Sender: FDA-Public Use
  Company Number: None

PATIENT
  Age: 81 Year
  Sex: Female
  Weight: 36.7414 kg

DRUGS (1)
  1. RECLAST [Suspect]
     Indication: BONE DISORDER
     Dosage: ANNUAL IV
     Route: 042
     Dates: start: 20111101

REACTIONS (8)
  - VERTIGO [None]
  - MASTICATION DISORDER [None]
  - TOOTH DISORDER [None]
  - NAUSEA [None]
  - BURNING SENSATION [None]
  - PAIN [None]
  - NERVE INJURY [None]
  - EAR PAIN [None]
